FAERS Safety Report 8532876-0 (Version None)
Quarter: 2012Q3

REPORT INFORMATION
  Report Type: 
  Country: None (occurrence: None)
  Receive Date: 20120724
  Receipt Date: 20120713
  Transmission Date: 20120928
  Serious: Yes (Life-Threatening, Hospitalization)
  Sender: FDA-Public Use
  Company Number: JP-AMGEN-JPNCT2012036967

PATIENT
  Age: 50 Year
  Sex: Female
  Weight: 69 kg

DRUGS (15)
  1. ROMIPLOSTIM - KHK [Suspect]
     Dosage: 3.57 MUG/KG, QWK
     Route: 058
     Dates: start: 20120307, end: 20120411
  2. LENDORMIN [Concomitant]
     Indication: INSOMNIA
  3. LANSOPRAZOLE [Concomitant]
     Indication: PROPHYLAXIS
     Route: 048
     Dates: start: 20120321
  4. ROMIPLOSTIM - KHK [Suspect]
     Dosage: 3.57 MUG/KG, QWK
     Route: 058
     Dates: start: 20111006, end: 20111006
  5. ROMIPLOSTIM - KHK [Suspect]
     Dosage: 3.57 MUG/KG, QWK
     Route: 058
     Dates: start: 20111012, end: 20111116
  6. ACETAMINOPHEN [Concomitant]
     Dosage: UNK
     Route: 048
  7. ROMIPLOSTIM - KHK [Suspect]
     Indication: IDIOPATHIC THROMBOCYTOPENIC PURPURA
     Dosage: 3.57 MUG/KG, QWK
     Route: 058
     Dates: start: 20110920, end: 20110927
  8. ROMIPLOSTIM - KHK [Suspect]
     Dosage: 3.57 MUG/KG, QWK
     Route: 058
     Dates: start: 20111124, end: 20120229
  9. PREDNISOLONE [Suspect]
     Indication: IDIOPATHIC THROMBOCYTOPENIC PURPURA
     Dosage: 11 MG, UNK
     Route: 048
     Dates: start: 20110827
  10. PURSENNID [Concomitant]
     Dosage: UNK
     Route: 048
  11. MUCOSTA [Concomitant]
     Indication: PROPHYLAXIS
     Dosage: UNK
     Route: 048
     Dates: start: 20120321
  12. ALENDRONATE SODIUM [Concomitant]
     Indication: IDIOPATHIC THROMBOCYTOPENIC PURPURA
     Dosage: 35 MG, QD
     Route: 048
     Dates: start: 20120321
  13. ROMIPLOSTIM - KHK [Suspect]
     Dosage: 3.57 MUG/KG, QWK
     Route: 058
     Dates: start: 20120418, end: 20120509
  14. ROMIPLOSTIM - KHK [Suspect]
     Dosage: 3.57 MUG/KG, QWK
     Route: 058
     Dates: start: 20120517, end: 20120530
  15. ROZEREM [Concomitant]
     Indication: INSOMNIA
     Route: 048
     Dates: start: 20120516

REACTIONS (6)
  - HEADACHE [None]
  - ACUTE MYOCARDIAL INFARCTION [None]
  - NEUTROPHIL COUNT INCREASED [None]
  - INSOMNIA [None]
  - RHINITIS ALLERGIC [None]
  - PLATELET COUNT DECREASED [None]
